FAERS Safety Report 9736276 (Version 1)
Quarter: 2013Q4

REPORT INFORMATION
  Report Type: Spontaneous
  Country: US (occurrence: None)
  Receive Date: 20131204
  Receipt Date: 20131204
  Transmission Date: 20140711
  Serious: Yes (Death)
  Sender: FDA-Public Use
  Company Number: US-ALKEM-000289

PATIENT
  Age: 67 Year
  Sex: Female

DRUGS (2)
  1. METFORMIN [Suspect]
     Dosage: ORAL
     Route: 048
  2. DIGOXIN [Suspect]
     Dosage: ORAL
     Route: 048

REACTIONS (2)
  - Overdose [None]
  - Adverse drug reaction [None]
